FAERS Safety Report 4692625-3 (Version None)
Quarter: 2005Q2

REPORT INFORMATION
  Report Type: 
  Country: None (occurrence: None)
  Receive Date: 20050617
  Receipt Date: 20050314
  Transmission Date: 20051028
  Serious: Yes (Hospitalization)
  Sender: FDA-Public Use
  Company Number: US-MERCK-0503USA02976

PATIENT
  Age: 34 Year
  Sex: Female
  Weight: 135 kg

DRUGS (9)
  1. VIOXX [Suspect]
     Indication: RHEUMATOID ARTHRITIS
     Route: 048
     Dates: start: 20010214, end: 20040901
  2. PREDNISONE [Concomitant]
     Route: 065
  3. [THERAPY UNSPECIFIED] [Concomitant]
     Route: 065
  4. TYLENOL W/ CODEINE NO. 3 [Concomitant]
     Route: 065
  5. VICODIN [Concomitant]
     Route: 065
  6. [THERAPY UNSPECIFIED] [Concomitant]
     Route: 065
  7. POTASSIUM (UNSPECIFIED) [Concomitant]
     Route: 065
  8. AZULFIDINE [Concomitant]
     Route: 065
  9. ULTRAM [Concomitant]
     Route: 065

REACTIONS (14)
  - ABDOMINAL PAIN UPPER [None]
  - ANXIETY [None]
  - CHRONIC FATIGUE SYNDROME [None]
  - DEEP VEIN THROMBOSIS [None]
  - DISTURBANCE IN ATTENTION [None]
  - EMOTIONAL DISTRESS [None]
  - GASTRIC DISORDER [None]
  - GASTROINTESTINAL DISORDER [None]
  - HYPERTENSION [None]
  - IRRITABLE BOWEL SYNDROME [None]
  - MYOCARDIAL INFARCTION [None]
  - NAUSEA [None]
  - PAIN [None]
  - PULMONARY EMBOLISM [None]
